FAERS Safety Report 25114349 (Version 4)
Quarter: 2025Q3

REPORT INFORMATION
  Report Type: Spontaneous
  Country: US (occurrence: US)
  Receive Date: 20250324
  Receipt Date: 20250710
  Transmission Date: 20251020
  Serious: No
  Sender: SANOFI AVENTIS
  Company Number: US-SA-2025SA084189

PATIENT
  Age: 62 Year
  Sex: Female
  Weight: 94.8 kg

DRUGS (7)
  1. DUPIXENT [Suspect]
     Active Substance: DUPILUMAB
     Indication: Asthma
     Dosage: 300 MG, QOW
     Route: 058
  2. HYDROXYCHLOROQUINE SULFATE [Concomitant]
     Active Substance: HYDROXYCHLOROQUINE SULFATE
     Route: 048
  3. PREDNISONE [Concomitant]
     Active Substance: PREDNISONE
     Dosage: 1 TABLET ONCE A DAY
     Route: 048
  4. EPIPEN [Concomitant]
     Active Substance: EPINEPHRINE
     Indication: Anaphylactic reaction
  5. LEVOTHYROXINE SODIUM [Concomitant]
     Active Substance: LEVOTHYROXINE SODIUM
  6. PLAQUENIL [Concomitant]
     Active Substance: HYDROXYCHLOROQUINE SULFATE
     Route: 048
  7. GLIPIZIDE [Concomitant]
     Active Substance: GLIPIZIDE
     Dosage: 1 TABLET 30 MINS BEFORE BREAKFAST ORALLY ONCE A DAY
     Route: 048

REACTIONS (13)
  - Dyspnoea [Recovered/Resolved]
  - Cough [Unknown]
  - Secretion discharge [Unknown]
  - Therapeutic response shortened [Recovered/Resolved]
  - Sputum discoloured [Unknown]
  - Sleep disorder due to a general medical condition [Unknown]
  - Upper-airway cough syndrome [Unknown]
  - Obstructive sleep apnoea syndrome [Unknown]
  - Tinnitus [Unknown]
  - Pain [Unknown]
  - Dry throat [Unknown]
  - Nasal congestion [Unknown]
  - Injection site pruritus [Recovered/Resolved]

NARRATIVE: CASE EVENT DATE: 20250301
